FAERS Safety Report 8933160 (Version 2)
Quarter: 2012Q4

REPORT INFORMATION
  Report Type: Report from Study
  Country: RO (occurrence: RO)
  Receive Date: 20121128
  Receipt Date: 20121130
  Transmission Date: 20130627
  Serious: Yes (Life-Threatening, Hospitalization, Disabling, Other)
  Sender: FDA-Public Use
  Company Number: RO-ABBOTT-12P-135-1013157-00

PATIENT
  Age: 63 None
  Sex: Male
  Weight: 65 kg

DRUGS (4)
  1. ZEMPLAR [Suspect]
     Indication: HYPERPARATHYROIDISM SECONDARY
     Route: 048
     Dates: start: 20120222, end: 20120720
  2. MONOPRIL [Concomitant]
     Indication: HYPERTENSION
     Route: 048
  3. TALLITON [Concomitant]
     Indication: HYPERTENSION
  4. AMLODIPINUM [Concomitant]
     Indication: HYPERTENSION
     Route: 048

REACTIONS (5)
  - Atrioventricular block complete [Recovered/Resolved]
  - Hypertension [Recovered/Resolved]
  - Ischaemia [Recovered/Resolved]
  - Electrolyte imbalance [Recovered/Resolved]
  - Syncope [Unknown]
